FAERS Safety Report 8898660 (Version 1)
Quarter: 2012Q4

REPORT INFORMATION
  Report Type: 
  Country: US (occurrence: US)
  Receive Date: 20121109
  Receipt Date: 20121109
  Transmission Date: 20130627
  Serious: Yes (Other)
  Sender: FDA-Public Use
  Company Number: US-PFIZER INC-2012278652

PATIENT
  Age: 54 Year
  Sex: Female
  Weight: 82 kg

DRUGS (2)
  1. VISTARIL [Suspect]
     Indication: ITCHING
     Dosage: 25 mg, 1x/day
     Route: 048
  2. VISTARIL [Suspect]
     Indication: ALLERGY

REACTIONS (3)
  - Ovarian cancer [Unknown]
  - Arthropathy [Unknown]
  - Nausea [Unknown]
